FAERS Safety Report 12312609 (Version 2)
Quarter: 2016Q2

REPORT INFORMATION
  Report Type: Spontaneous
  Country: US (occurrence: US)
  Receive Date: 20160428
  Receipt Date: 20160601
  Transmission Date: 20160815
  Serious: Yes (Death, Hospitalization, Other)
  Sender: FDA-Public Use
  Company Number: US-PFIZER INC-2016224105

PATIENT
  Age: 55 Year
  Sex: Female

DRUGS (4)
  1. MEGACE [Concomitant]
     Active Substance: MEGESTROL ACETATE
     Indication: APPETITE DISORDER
     Dosage: UNK
     Dates: start: 20160308, end: 20160408
  2. IBRANCE [Suspect]
     Active Substance: PALBOCICLIB
     Indication: BREAST CANCER METASTATIC
     Dosage: 125 MG, CYCLIC (125 MG DAILY DAY 1-21)
     Route: 048
     Dates: start: 20160319, end: 20160408
  3. ATIVAN [Concomitant]
     Active Substance: LORAZEPAM
     Dosage: 2 MG, AS NEEDED (TID, PRN)
  4. FENTANYL. [Concomitant]
     Active Substance: FENTANYL
     Dosage: 50 UG, UNK (Q 72 HOURS))

REACTIONS (23)
  - Acute kidney injury [Unknown]
  - Hypocalcaemia [Unknown]
  - Pancytopenia [Unknown]
  - Disease progression [Unknown]
  - Constipation [Unknown]
  - Anaemia [Unknown]
  - Pain [Unknown]
  - Dehydration [Unknown]
  - Breast cancer metastatic [Unknown]
  - Death [Fatal]
  - Lactic acidosis [Unknown]
  - Encephalopathy [Unknown]
  - Decreased appetite [Unknown]
  - Abdominal pain [Unknown]
  - Diarrhoea [Unknown]
  - Malnutrition [Unknown]
  - Thrombocytopenia [Unknown]
  - Chronic kidney disease [Unknown]
  - Dyspnoea [Unknown]
  - Cachexia [Unknown]
  - Neutropenia [Unknown]
  - Feeling cold [Unknown]
  - Hypertension [Unknown]

NARRATIVE: CASE EVENT DATE: 2016
